FAERS Safety Report 6999386-3 (Version None)
Quarter: 2010Q3

REPORT INFORMATION
  Report Type: 
  Country: None (occurrence: None)
  Receive Date: 20100920
  Receipt Date: 20100308
  Transmission Date: 20110219
  Serious: No
  Sender: FDA-Public Use
  Company Number: US-ASTRAZENECA-2009SE33577

PATIENT
  Age: 52 Year
  Sex: Male
  Weight: 80.7 kg

DRUGS (5)
  1. SEROQUEL [Suspect]
     Indication: BIPOLAR DISORDER
     Route: 048
     Dates: start: 20080601
  2. SEROQUEL [Suspect]
     Route: 048
     Dates: start: 20090710
  3. SEROQUEL [Suspect]
     Route: 048
     Dates: end: 20100301
  4. DEPAKOTE [Concomitant]
     Route: 048
  5. LEXAPRO [Concomitant]

REACTIONS (7)
  - AGITATION [None]
  - DYSPHAGIA [None]
  - INITIAL INSOMNIA [None]
  - NASAL CONGESTION [None]
  - PRE-EXISTING CONDITION IMPROVED [None]
  - SOMNOLENCE [None]
  - WEIGHT INCREASED [None]
